FAERS Safety Report 14536856 (Version 1)
Quarter: 2018Q1

REPORT INFORMATION
  Report Type: Report from Study
  Country: CH (occurrence: CH)
  Receive Date: 20180215
  Receipt Date: 20180215
  Transmission Date: 20180509
  Serious: Yes (Death, Other)
  Sender: FDA-Public Use
  Company Number: CH-MYLANLABS-2018M1010157

PATIENT

DRUGS (2)
  1. CISPLATIN. [Suspect]
     Active Substance: CISPLATIN
     Indication: BILE DUCT ADENOCARCINOMA
     Dosage: RECEIVED 25 MG/M2 ON DAYS 1 AND 8 EVERY 21 DAYS.
     Route: 065
  2. GEMCITABINE [Suspect]
     Active Substance: GEMCITABINE\GEMCITABINE HYDROCHLORIDE
     Indication: BILE DUCT ADENOCARCINOMA
     Dosage: RECEIVED 1000 MG/M2 ON DAYS 1 AND 8 EVERY 21 DAYS.
     Route: 065

REACTIONS (2)
  - Septic shock [Fatal]
  - Lung infection [Fatal]
